FAERS Safety Report 4554734-9 (Version None)
Quarter: 2004Q4

REPORT INFORMATION
  Report Type: 
  Country: None (occurrence: None)
  Receive Date: 20041227
  Receipt Date: 20041116
  Transmission Date: 20050328
  Serious: No
  Sender: FDA-Public Use
  Company Number: US099604

PATIENT
  Sex: Male
  Weight: 69.5 kg

DRUGS (6)
  1. SENSIPAR [Suspect]
     Indication: HYPERPARATHYROIDISM PRIMARY
     Dosage: 30 MG, 2 IN 1 DAYS, PO
     Route: 048
     Dates: start: 20040916
  2. ROSIGLITAZONE MALEATE [Concomitant]
  3. METFORMIN HCL [Concomitant]
  4. IRBESARTAN [Concomitant]
  5. ATORVASTATIN CALCIUM [Concomitant]
  6. ACETYLSALICYLIC ACID SRT [Concomitant]

REACTIONS (1)
  - WHITE BLOOD CELL COUNT DECREASED [None]
